FAERS Safety Report 6550246-1 (Version None)
Quarter: 2010Q1

REPORT INFORMATION
  Report Type: 
  Country: None (occurrence: None)
  Receive Date: 20100119
  Receipt Date: 20100104
  Transmission Date: 20100710
  Serious: Yes (Other)
  Sender: FDA-Public Use
  Company Number: 2010000002

PATIENT
  Age: 45 Year
  Sex: Female

DRUGS (4)
  1. ERLOTINIB HYDROCHLORIDE [Suspect]
     Indication: LUNG ADENOCARCINOMA
     Dosage: 150 MG, QD, ORAL
     Route: 048
     Dates: start: 20090619, end: 20091124
  2. PEMETREXED [Suspect]
     Indication: LUNG ADENOCARCINOMA
     Dosage: INTRAVENOUS DRIP
     Route: 041
     Dates: start: 20091110
  3. DECADRON [Concomitant]
  4. NAUZELIN (DOMPERIDONE) [Concomitant]

REACTIONS (4)
  - BLOOD CREATININE DECREASED [None]
  - HAEMOGLOBIN DECREASED [None]
  - PLATELET COUNT DECREASED [None]
  - RASH [None]
